FAERS Safety Report 7014920-5 (Version None)
Quarter: 2010Q3

REPORT INFORMATION
  Report Type: 
  Country: None (occurrence: None)
  Receive Date: 20100927
  Receipt Date: 20100107
  Transmission Date: 20110219
  Serious: No
  Sender: FDA-Public Use
  Company Number: US-ASTRAZENECA-2009SE30144

PATIENT
  Sex: Female
  Weight: 72.6 kg

DRUGS (4)
  1. ARIMIDEX [Suspect]
     Indication: BREAST CANCER
     Route: 048
     Dates: start: 20090901
  2. NOLVADEX [Suspect]
     Route: 048
  3. TOPROL-XL [Concomitant]
     Indication: HEART RATE INCREASED
  4. FEMARA [Concomitant]

REACTIONS (3)
  - ADVERSE EVENT [None]
  - ARTHRALGIA [None]
  - SKIN DISORDER [None]
